FAERS Safety Report 10211346 (Version 2)
Quarter: 2014Q2

REPORT INFORMATION
  Report Type: Report from Study
  Country: IT (occurrence: IT)
  Receive Date: 20140602
  Receipt Date: 20140613
  Transmission Date: 20141212
  Serious: Yes (Hospitalization)
  Sender: FDA-Public Use
  Company Number: IT-TEVA-484448ISR

PATIENT
  Age: 69 Year
  Sex: Female

DRUGS (6)
  1. MYOCET [Suspect]
     Indication: HER-2 POSITIVE BREAST CANCER
     Dosage: 120 MILLIGRAM DAILY;
     Route: 042
     Dates: start: 20110519
  2. METFORMINA [Suspect]
     Indication: HER-2 POSITIVE BREAST CANCER
     Dosage: 2000 MILLIGRAM DAILY;
     Route: 048
     Dates: start: 20110506
  3. ENDOXAN [Suspect]
     Indication: HER-2 POSITIVE BREAST CANCER
     Dosage: 1175 MILLIGRAM DAILY;
     Route: 042
     Dates: start: 20110519
  4. LIMICAN [Concomitant]
  5. SOLDESAM [Concomitant]
  6. LOPERAMIDE [Concomitant]
     Dosage: 2 TABLET DAILY;

REACTIONS (3)
  - Neutropenia [Recovered/Resolved]
  - Thrombocytopenia [Recovered/Resolved]
  - Mucosal inflammation [Recovered/Resolved]
